FAERS Safety Report 19965153 (Version 1)
Quarter: 2021Q4

REPORT INFORMATION
  Report Type: Spontaneous
  Country: US (occurrence: US)
  Receive Date: 20211018
  Receipt Date: 20211018
  Transmission Date: 20220303
  Serious: No
  Sender: FDA-Public Use
  Company Number: US-PFIZER INC-2021036775

PATIENT
  Age: 65 Year
  Sex: Female
  Weight: 68 kg

DRUGS (2)
  1. IBRANCE [Suspect]
     Active Substance: PALBOCICLIB
     Indication: Breast cancer
     Dosage: 125 MG, CYCLIC (21 DAYS OD, 7 DAYS OFF)
     Dates: start: 20200620, end: 20210504
  2. LETROZOLE [Concomitant]
     Active Substance: LETROZOLE
     Dosage: UNK
     Dates: start: 20200630

REACTIONS (1)
  - Neoplasm progression [Unknown]
